FAERS Safety Report 5243363-X (Version None)
Quarter: 2007Q1

REPORT INFORMATION
  Report Type: 
  Country: None (occurrence: None)
  Receive Date: 20061201
  Receipt Date: 20060819
  Transmission Date: 20070707
  Serious: No
  Sender: FDA-Public Use
  Company Number: 2006PV019733

PATIENT
  Age: 54 Year
  Sex: Female
  Weight: 154.6766 kg

DRUGS (4)
  1. BYETTA [Suspect]
     Indication: DIABETES MELLITUS NON-INSULIN-DEPENDENT
     Dosage: 5 MCG; QD; SC
     Route: 058
     Dates: start: 20060819
  2. AVANDIA [Concomitant]
  3. GLIMEPIRIDE [Concomitant]
  4. LANTUS [Concomitant]

REACTIONS (3)
  - DYSGEUSIA [None]
  - INFLUENZA LIKE ILLNESS [None]
  - NAUSEA [None]
